FAERS Safety Report 9175497 (Version 4)
Quarter: 2019Q1

REPORT INFORMATION
  Report Type: Report from Study
  Country: DE (occurrence: DE)
  Receive Date: 20130320
  Receipt Date: 20190114
  Transmission Date: 20190418
  Serious: Yes (Death, Hospitalization)
  Sender: FDA-Public Use
  Company Number: DE-ROCHE-1203796

PATIENT
  Age: 69 Year
  Sex: Male
  Weight: 103 kg

DRUGS (5)
  1. 5-FU [Suspect]
     Active Substance: FLUOROURACIL
     Route: 040
     Dates: start: 20130124, end: 20130124
  2. 5-FU [Suspect]
     Active Substance: FLUOROURACIL
     Indication: COLORECTAL CANCER METASTATIC
     Route: 041
     Dates: start: 20130124, end: 20130125
  3. FOLINIC ACID [Suspect]
     Active Substance: LEUCOVORIN
     Indication: COLORECTAL CANCER METASTATIC
     Dosage: 24 1 2013
     Route: 042
     Dates: start: 20130124, end: 20130124
  4. BEVACIZUMAB. [Suspect]
     Active Substance: BEVACIZUMAB
     Indication: COLORECTAL CANCER METASTATIC
     Route: 042
     Dates: start: 20130124, end: 20130124
  5. OXALIPLATIN. [Suspect]
     Active Substance: OXALIPLATIN
     Indication: COLORECTAL CANCER METASTATIC
     Route: 042
     Dates: start: 20130124, end: 20130124

REACTIONS (2)
  - Metastases to central nervous system [Recovered/Resolved]
  - Jaundice [Fatal]

NARRATIVE: CASE EVENT DATE: 20130218
